FAERS Safety Report 17803941 (Version 4)
Quarter: 2025Q3

REPORT INFORMATION
  Report Type: Spontaneous
  Country: JP (occurrence: JP)
  Receive Date: 20200519
  Receipt Date: 20250815
  Transmission Date: 20251020
  Serious: Yes (Death, Life-Threatening, Hospitalization, Other)
  Sender: NOVARTIS
  Company Number: None

PATIENT
  Age: 65 Year
  Sex: Female
  Weight: 29 kg

DRUGS (20)
  1. FINGOLIMOD HYDROCHLORIDE [Suspect]
     Active Substance: FINGOLIMOD HYDROCHLORIDE
     Indication: Multiple sclerosis
     Dosage: 0.5 MG, QD
     Route: 048
     Dates: start: 20130409, end: 20200131
  2. BETAFERON [Concomitant]
     Active Substance: INTERFERON BETA-1B
     Indication: Product used for unknown indication
     Route: 065
     Dates: start: 200108
  3. Prednisolone;Tocopheryl acetate [Concomitant]
     Indication: Product used for unknown indication
     Route: 065
     Dates: start: 200606
  4. Prednisolone;Tocopheryl acetate [Concomitant]
     Dosage: 4 MG, QD, APPROXIMATELY 3/3
     Route: 048
     Dates: start: 20200214
  5. Prednisolone;Tocopheryl acetate [Concomitant]
     Dosage: 3 MG, QD, APPROXIMATELY 3/16
     Route: 048
     Dates: start: 20200304
  6. Prednisolone;Tocopheryl acetate [Concomitant]
     Dosage: 2 MG, QD
     Route: 048
     Dates: start: 20200317
  7. HUMAN IMMUNOGLOBULIN G [Concomitant]
     Active Substance: HUMAN IMMUNOGLOBULIN G
     Indication: Product used for unknown indication
     Route: 065
     Dates: start: 20071107
  8. RALOXIFENE HYDROCHLORIDE [Concomitant]
     Active Substance: RALOXIFENE HYDROCHLORIDE
     Indication: Osteoporosis
     Route: 065
     Dates: end: 20200317
  9. FAMOTIDINE [Concomitant]
     Active Substance: FAMOTIDINE
     Indication: Gastric ulcer
     Route: 065
  10. MIYA-BM [Concomitant]
     Active Substance: CLOSTRIDIUM BUTYRICUM SPORES STRAIN M-55
     Indication: Constipation
     Route: 065
     Dates: end: 20200213
  11. LINACLOTIDE [Concomitant]
     Active Substance: LINACLOTIDE
     Indication: Constipation
     Route: 065
     Dates: end: 20200213
  12. QUERCUS SALICINA STEM [Concomitant]
     Active Substance: QUERCUS SALICINA STEM
     Indication: Ureterolithiasis
     Route: 065
     Dates: end: 20200213
  13. BETAHISTINE MESILATE [Concomitant]
     Active Substance: BETAHISTINE MESILATE
     Indication: Dizziness
     Route: 065
     Dates: end: 20200213
  14. DANTROLENE SODIUM [Concomitant]
     Active Substance: DANTROLENE SODIUM
     Indication: Multiple sclerosis
     Route: 065
  15. Neumethycole [Concomitant]
     Indication: Nervous system disorder
     Route: 065
     Dates: end: 20200213
  16. POTASSIUM ASPARTATE [Concomitant]
     Active Substance: POTASSIUM ASPARTATE
     Indication: Mineral supplementation
     Route: 065
     Dates: end: 20200213
  17. Unacid [Concomitant]
     Indication: Product used for unknown indication
     Dosage: 3 G, BID UPTO 1/20
     Route: 042
  18. SOLU-MEDROL [Concomitant]
     Active Substance: METHYLPREDNISOLONE SODIUM SUCCINATE
     Indication: Product used for unknown indication
     Dosage: 1000 MG, QD, APPROXIMATELY 1/23
     Route: 042
     Dates: start: 20200121
  19. Myser [Concomitant]
     Indication: Erythema
     Route: 065
     Dates: start: 20200121
  20. PREDONINE [Concomitant]
     Active Substance: PREDNISOLONE
     Indication: Product used for unknown indication
     Dosage: 5 MG, QD, APPROXIMATELY 2/13
     Route: 042

REACTIONS (4)
  - Progressive multifocal leukoencephalopathy [Fatal]
  - Respiratory failure [Fatal]
  - Pneumonia aspiration [Recovered/Resolved]
  - Rash [Recovered/Resolved]

NARRATIVE: CASE EVENT DATE: 20191201
